FAERS Safety Report 16575280 (Version 2)
Quarter: 2019Q3

REPORT INFORMATION
  Report Type: Report from Study
  Country: None (occurrence: US)
  Receive Date: 20190716
  Receipt Date: 20190724
  Transmission Date: 20191004
  Serious: Yes (Other)
  Sender: FDA-Public Use
  Company Number: US-ABBVIE-19K-163-2848032-00

PATIENT
  Age: 62 Year
  Sex: Female
  Weight: 118.04 kg

DRUGS (8)
  1. ALLEGRA [Concomitant]
     Active Substance: FEXOFENADINE HYDROCHLORIDE
     Indication: HYPERSENSITIVITY
  2. BUPROPION HCL [Concomitant]
     Active Substance: BUPROPION HYDROCHLORIDE
     Indication: DEPRESSION
  3. FIORICET [Concomitant]
     Active Substance: ACETAMINOPHEN\BUTALBITAL\CAFFEINE
     Indication: MIGRAINE
  4. FLUTICASONE. [Concomitant]
     Active Substance: FLUTICASONE
     Indication: HYPERSENSITIVITY
  5. SYNTHROID [Suspect]
     Active Substance: LEVOTHYROXINE SODIUM
     Indication: HYPOTHYROIDISM
     Route: 048
     Dates: start: 201804
  6. METHADONE [Concomitant]
     Active Substance: METHADONE HYDROCHLORIDE
     Indication: NEUROPATHY PERIPHERAL
  7. MUPIROCIN. [Concomitant]
     Active Substance: MUPIROCIN
     Indication: NASAL DRYNESS
  8. ALBUTEROL. [Concomitant]
     Active Substance: ALBUTEROL
     Indication: ASTHMA

REACTIONS (18)
  - Unevaluable event [Unknown]
  - Dry mouth [Unknown]
  - Musculoskeletal discomfort [Unknown]
  - Anxiety [Unknown]
  - Neuromyopathy [Unknown]
  - Hyperaesthesia [Unknown]
  - Pruritus [Unknown]
  - Small fibre neuropathy [Unknown]
  - Myofascial pain syndrome [Unknown]
  - Gait inability [Unknown]
  - Cholecystectomy [Unknown]
  - Migraine [Unknown]
  - Spinal stenosis [Unknown]
  - Road traffic accident [Unknown]
  - Hypothyroidism [Unknown]
  - Depression [Unknown]
  - Arthralgia [Unknown]
  - Gingival bleeding [Unknown]

NARRATIVE: CASE EVENT DATE: 201906
